FAERS Safety Report 15993708 (Version 1)
Quarter: 2019Q1

REPORT INFORMATION
  Report Type: Spontaneous
  Country: CN (occurrence: CN)
  Receive Date: 20190222
  Receipt Date: 20190222
  Transmission Date: 20190418
  Serious: Yes (Other)
  Sender: FDA-Public Use
  Company Number: CN-BAXTER-2019BAX003485

PATIENT
  Age: 78 Year
  Sex: Female

DRUGS (1)
  1. 20% MANNITOL INJECTION [Suspect]
     Active Substance: MANNITOL
     Indication: SPINAL CORD OEDEMA
     Route: 041
     Dates: start: 20190102, end: 20190102

REACTIONS (8)
  - Mobility decreased [Recovered/Resolved]
  - Cardiac failure [Recovered/Resolved]
  - Asthma [Recovered/Resolved]
  - Productive cough [Recovered/Resolved]
  - Neuropathy peripheral [Unknown]
  - Spinal cord injury [Unknown]
  - Condition aggravated [Unknown]
  - Sputum discoloured [Recovered/Resolved]

NARRATIVE: CASE EVENT DATE: 20190102
